FAERS Safety Report 6614084-3 (Version None)
Quarter: 2010Q1

REPORT INFORMATION
  Report Type: 
  Country: None (occurrence: None)
  Receive Date: 20100304
  Receipt Date: 20100222
  Transmission Date: 20100710
  Serious: Yes (Other)
  Sender: FDA-Public Use
  Company Number: PHHY2010JP05287

PATIENT
  Age: 80 Year
  Sex: Male

DRUGS (2)
  1. ZOMETA [Suspect]
     Indication: METASTASES TO BONE
     Dosage: 4 MG, UNK
     Route: 042
     Dates: start: 20100125
  2. MARUYAMA VACCINE [Concomitant]
     Route: 058

REACTIONS (6)
  - CHOKING SENSATION [None]
  - COUGH [None]
  - INFLUENZA LIKE ILLNESS [None]
  - MALAISE [None]
  - PLEURAL EFFUSION [None]
  - PYREXIA [None]
